FAERS Safety Report 5117037-X (Version None)
Quarter: 2006Q3

REPORT INFORMATION
  Report Type: 
  Country: None (occurrence: None)
  Receive Date: 20060925
  Receipt Date: 20060915
  Transmission Date: 20061208
  Serious: Yes (Other)
  Sender: FDA-Public Use
  Company Number: 2006104587

PATIENT
  Age: 26 Year
  Sex: Female

DRUGS (9)
  1. ZOLOFT [Suspect]
     Indication: DEPRESSION
     Dosage: 50 MG, ORAL
     Route: 048
     Dates: start: 20060710, end: 20060820
  2. DESYREL [Suspect]
     Indication: DRUG USE FOR UNKNOWN INDICATION
     Dosage: ORAL
     Route: 048
  3. ALPRAZOLAM [Suspect]
     Indication: DRUG USE FOR UNKNOWN INDICATION
     Dosage: 0.4 MG, ORAL
     Route: 048
     Dates: start: 20060710
  4. NITRAZEPAM [Suspect]
     Indication: DRUG USE FOR UNKNOWN INDICATION
     Dosage: 10 MG, ORAL
     Route: 048
     Dates: start: 20060731
  5. DEPAS (ETIZOLAM) [Concomitant]
  6. NAUZELIN (DOMPRIDONE) [Concomitant]
  7. FAMOTIDINE [Concomitant]
  8. ZOLPIDEM TARTRATE [Concomitant]
  9. ALCOHOL (ETHANOL) [Concomitant]

REACTIONS (8)
  - ALCOHOL USE [None]
  - APATHY [None]
  - DISINHIBITION [None]
  - FEELING ABNORMAL [None]
  - ILLUSION [None]
  - LACERATION [None]
  - PSYCHIATRIC SYMPTOM [None]
  - SELF INJURIOUS BEHAVIOUR [None]
